FAERS Safety Report 5302023-7 (Version None)
Quarter: 2007Q2

REPORT INFORMATION
  Report Type: 
  Country: None (occurrence: None)
  Receive Date: 20070412
  Receipt Date: 20070405
  Transmission Date: 20071010
  Serious: Yes (Hospitalization)
  Sender: FDA-Public Use
  Company Number: E3810-00748-SPO-CA

PATIENT
  Age: 62 Year
  Sex: Male

DRUGS (5)
  1. RABEPRAZOLE SODIUM [Suspect]
     Indication: GASTROOESOPHAGEAL REFLUX DISEASE
     Dosage: 20 MG, 1 IN 1 D, ORAL
     Route: 048
  2. SPIRIVA [Concomitant]
  3. SALBUTAMOL (SALBUTAMOL) [Concomitant]
  4. ADVAIR DISKUS (SERETIDE MITE) [Concomitant]
  5. RHINOCORT [Concomitant]

REACTIONS (4)
  - ANOREXIA [None]
  - CONSTIPATION [None]
  - HEADACHE [None]
  - INFECTION [None]
